FAERS Safety Report 18794003 (Version 1)
Quarter: 2021Q1

REPORT INFORMATION
  Report Type: Spontaneous
  Country: CA (occurrence: CA)
  Receive Date: 20210127
  Receipt Date: 20210127
  Transmission Date: 20210419
  Serious: Yes (Hospitalization, Other)
  Sender: FDA-Public Use
  Company Number: CA-COVIS PHARMA B.V.-2021COV00026

PATIENT
  Age: 53 Year
  Sex: Male

DRUGS (9)
  1. RADICUT [Suspect]
     Active Substance: EDARAVONE
     Indication: AMYOTROPHIC LATERAL SCLEROSIS
     Dosage: UNK
     Dates: start: 20200804
  2. BISOPROLOL FUMARATE. [Concomitant]
     Active Substance: BISOPROLOL FUMARATE
     Dosage: UNK
  3. APOPRODICOCOR [Concomitant]
  4. RADICUT [Suspect]
     Active Substance: EDARAVONE
     Dosage: 10 DAYS OUT OF 14 ON, 14 DAYS OFF
  5. CRESTOR [Concomitant]
     Active Substance: ROSUVASTATIN CALCIUM
     Dosage: UNK
  6. PANTOPRAZOLE SODIUM SESQUIHYDRATE [Concomitant]
     Active Substance: PANTOPRAZOLE SODIUM
     Dosage: UNK
  7. AVODART [Concomitant]
     Active Substance: DUTASTERIDE
     Dosage: UNK
  8. RADICUT [Suspect]
     Active Substance: EDARAVONE
     Dosage: UNK
     Dates: start: 20201207, end: 20201213
  9. RILUZOLE. [Suspect]
     Active Substance: RILUZOLE
     Indication: PRODUCT USED FOR UNKNOWN INDICATION
     Dosage: 50 MG, 2X/DAY
     Route: 048
     Dates: start: 20200416

REACTIONS (8)
  - Hypotension [Unknown]
  - Device issue [Recovered/Resolved]
  - Hepatic enzyme increased [Unknown]
  - Pancreatic carcinoma [Unknown]
  - Condition aggravated [Unknown]
  - Transient ischaemic attack [Unknown]
  - Poor venous access [Unknown]
  - Hypokinesia [Unknown]

NARRATIVE: CASE EVENT DATE: 20201220
